FAERS Safety Report 9419646 (Version 1)
Quarter: 2013Q3

REPORT INFORMATION
  Report Type: Spontaneous
  Country: US (occurrence: None)
  Receive Date: 20130724
  Receipt Date: 20130724
  Transmission Date: 20140515
  Serious: Yes (Death)
  Sender: FDA-Public Use
  Company Number: 2013CT000057

PATIENT
  Age: 67 Year
  Sex: Female
  Weight: 138.8 kg

DRUGS (17)
  1. KORLYM [Suspect]
     Indication: CUSHING^S SYNDROME
     Dosage: 300 MG;QD;PO
     Route: 048
  2. SIMVASTATIN [Concomitant]
  3. PLAVIX [Concomitant]
  4. CYMBALTA [Concomitant]
  5. BYSTOLIC [Concomitant]
  6. MUTAQ [Concomitant]
  7. FUROSEMIDE [Concomitant]
  8. ASPIRIN [Concomitant]
  9. BUPROPION [Concomitant]
  10. ALTACE [Concomitant]
  11. METFORMIN ER [Concomitant]
  12. JANUVIA [Concomitant]
  13. POTASSIUM [Concomitant]
  14. VITAMIN D [Concomitant]
  15. NYSTATIN [Concomitant]
  16. LIDOCAINE [Concomitant]
  17. INSULIN [Concomitant]

REACTIONS (1)
  - Blood glucose decreased [None]
